FAERS Safety Report 9347904 (Version 3)
Quarter: 2013Q3

REPORT INFORMATION
  Report Type: Spontaneous
  Country: GB (occurrence: GB)
  Receive Date: 20130614
  Receipt Date: 20130711
  Transmission Date: 20140515
  Serious: Yes (Hospitalization, Other)
  Sender: FDA-Public Use
  Company Number: GB-ACCORD-018004

PATIENT
  Age: 74 Year
  Sex: Female
  Weight: 64.7 kg

DRUGS (7)
  1. PACLITAXEL [Suspect]
     Indication: OVARIAN CANCER
  2. CARBOPLATIN [Suspect]
     Indication: OVARIAN CANCER
     Dosage: 480 MG 3/52
     Route: 041
     Dates: start: 20120704, end: 20121031
  3. ABRAXANE [Suspect]
     Indication: OVARIAN CANCER
     Dosage: 440 MG Q 3/52
     Route: 041
     Dates: start: 20120913, end: 20121002
  4. APREPITANT [Concomitant]
     Indication: ANTIEMETIC SUPPORTIVE CARE
     Route: 048
     Dates: start: 20120823, end: 20121031
  5. DEXAMETHASONE [Concomitant]
     Indication: ANTIEMETIC SUPPORTIVE CARE
     Route: 041
     Dates: start: 20120704, end: 20121031
  6. ONDANSETRON [Concomitant]
     Indication: ANTIEMETIC SUPPORTIVE CARE
     Route: 041
     Dates: start: 20120704, end: 20121031
  7. GLUCOSAMINE [Concomitant]
     Indication: ARTHRITIS
     Route: 048

REACTIONS (4)
  - Skin burning sensation [Recovered/Resolved]
  - Skin odour abnormal [Recovered/Resolved]
  - Nausea [Recovered/Resolved]
  - Hypersensitivity [Unknown]
